FAERS Safety Report 10780487 (Version 1)
Quarter: 2015Q1

REPORT INFORMATION
  Report Type: Spontaneous
  Country: US (occurrence: None)
  Receive Date: 20150209
  Receipt Date: 20150209
  Transmission Date: 20150721
  Serious: Yes (Hospitalization)
  Sender: FDA-Public Use
  Company Number: None

PATIENT
  Age: 81 Year
  Sex: Female
  Weight: 63 kg

DRUGS (15)
  1. OMNICEF [Suspect]
     Active Substance: CEFDINIR
  2. DIGOXIN (LANOXIN) [Concomitant]
  3. ASPIRIN. [Concomitant]
     Active Substance: ASPIRIN
  4. POTASSIUM CHLORIDE (KLOR-CON M20) [Concomitant]
  5. FERROUS SULFATE [Concomitant]
     Active Substance: FERROUS SULFATE\FERROUS SULFATE, DRIED
  6. DILTIAZEM (TIAZAC) [Concomitant]
  7. METOPROLOL (LOPRESSOR) [Concomitant]
  8. FUROSEMNIDE (LASIX) [Concomitant]
  9. LORATADINE (CLARITIN) [Concomitant]
  10. PROMETHAZINE-CODEINE [Concomitant]
     Active Substance: CODEINE PHOSPHATE\PROMETHAZINE
  11. HYDROCODONE-ACETAMINOPHNE [Concomitant]
  12. LEVOTHYROXINE (SYNTHROID, LEVOTHROID) [Concomitant]
  13. LEVOFLOXACIN 500 MG [Suspect]
     Active Substance: LEVOFLOXACIN
     Indication: PNEUMONIA
     Dosage: 1 TAB QD ORAL
     Route: 048
  14. WARFARIN 4MG [Suspect]
     Active Substance: WARFARIN
     Indication: ATRIAL FIBRILLATION
     Dosage: 1 TAB QD PO
     Route: 048
  15. LEVOFLOXACIN 500 MG [Suspect]
     Active Substance: LEVOFLOXACIN
     Indication: DYSPNOEA
     Dosage: 1 TAB QD ORAL
     Route: 048

REACTIONS (9)
  - Nausea [None]
  - X-ray abnormal [None]
  - Gastrointestinal haemorrhage [None]
  - Troponin increased [None]
  - International normalised ratio decreased [None]
  - Anaemia [None]
  - Haemorrhoids [None]
  - Chest pain [None]
  - Dyspnoea [None]

NARRATIVE: CASE EVENT DATE: 20140301
